FAERS Safety Report 7897663-5 (Version None)
Quarter: 2011Q4

REPORT INFORMATION
  Report Type: 
  Country: None (occurrence: None)
  Receive Date: 20111107
  Receipt Date: 20111101
  Transmission Date: 20120403
  Serious: Yes (Life-Threatening)
  Sender: FDA-Public Use
  Company Number: CN-GENZYME-THYM-1002879

PATIENT
  Sex: Female
  Weight: 32 kg

DRUGS (2)
  1. THYMOGLOBULIN [Suspect]
     Indication: PROPHYLAXIS AGAINST GRAFT VERSUS HOST DISEASE
     Dosage: 2.5 MG/KG, QD
     Route: 042
     Dates: start: 20110925, end: 20110927
  2. CYCLOSPORINE [Suspect]
     Indication: PROPHYLAXIS AGAINST TRANSPLANT REJECTION
     Dosage: 3 MG/KG, QD
     Route: 065
     Dates: start: 20110921

REACTIONS (1)
  - TACHYCARDIA PAROXYSMAL [None]
